FAERS Safety Report 22775398 (Version 2)
Quarter: 2024Q1

REPORT INFORMATION
  Report Type: Spontaneous
  Country: AT (occurrence: None)
  Receive Date: 20230802
  Receipt Date: 20240322
  Transmission Date: 20240410
  Serious: Yes (Other)
  Sender: FDA-Public Use
  Company Number: 2023A168930

PATIENT
  Age: 59 Year
  Sex: Male
  Weight: 108 kg

DRUGS (1)
  1. TEZSPIRE [Suspect]
     Active Substance: TEZEPELUMAB-EKKO
     Dosage: 210MG/1,91ML
     Route: 058
     Dates: start: 20230327, end: 20240110

REACTIONS (4)
  - Haemorrhoids [Recovered/Resolved]
  - Anorectal discomfort [Recovered/Resolved]
  - Rectal haemorrhage [Recovered/Resolved]
  - Dyschezia [Recovered/Resolved]

NARRATIVE: CASE EVENT DATE: 20230405
